FAERS Safety Report 17699283 (Version 1)
Quarter: 2020Q2

REPORT INFORMATION
  Report Type: Spontaneous
  Country: FR (occurrence: FR)
  Receive Date: 20200423
  Receipt Date: 20200423
  Transmission Date: 20200714
  Serious: Yes (Hospitalization)
  Sender: FDA-Public Use
  Company Number: NVSC2020FR107818

PATIENT
  Age: 14 Year
  Sex: Female
  Weight: 66 kg

DRUGS (1)
  1. IBUPROFENE SANDOZ [Suspect]
     Active Substance: IBUPROFEN
     Indication: HEADACHE
     Dosage: 400 MG
     Route: 048
     Dates: start: 20190628, end: 20190713

REACTIONS (2)
  - Renal failure [Recovering/Resolving]
  - Abdominal pain [Recovered/Resolved]

NARRATIVE: CASE EVENT DATE: 20190707
